FAERS Safety Report 9475951 (Version 1)
Quarter: 2013Q3

REPORT INFORMATION
  Report Type: Spontaneous
  Country: US (occurrence: US)
  Receive Date: 20130826
  Receipt Date: 20130826
  Transmission Date: 20140515
  Serious: Yes (Hospitalization)
  Sender: FDA-Public Use
  Company Number: US-BAYER-2013-102575

PATIENT
  Age: 25 Year
  Sex: Female

DRUGS (2)
  1. YASMIN [Suspect]
  2. AVONEX [Concomitant]
     Indication: MULTIPLE SCLEROSIS

REACTIONS (1)
  - Deep vein thrombosis [Recovering/Resolving]
